FAERS Safety Report 13683147 (Version 1)
Quarter: 2017Q2

REPORT INFORMATION
  Report Type: Spontaneous
  Country: US (occurrence: US)
  Receive Date: 20170623
  Receipt Date: 20170623
  Transmission Date: 20170830
  Serious: Yes (Other)
  Sender: FDA-Public Use
  Company Number: US-BAXTER-2017BAX017424

PATIENT
  Age: 52 Year
  Sex: Female

DRUGS (3)
  1. IMBRUVICA [Suspect]
     Active Substance: IBRUTINIB
     Route: 048
     Dates: start: 2016
  2. FLUCONAZOLE INJECTION, USP [Suspect]
     Active Substance: FLUCONAZOLE
     Indication: FUNGAL INFECTION
     Route: 065
     Dates: start: 2016, end: 2016
  3. IMBRUVICA [Suspect]
     Active Substance: IBRUTINIB
     Indication: CHRONIC LYMPHOCYTIC LEUKAEMIA
     Dosage: THE PATIENT WAS TAKING IBRUTINIB AROUND MID-MORNING WITHOUT FOOD
     Route: 048
     Dates: start: 20160330

REACTIONS (25)
  - Amnesia [Unknown]
  - Thought blocking [Unknown]
  - Chills [Unknown]
  - Anxiety [Unknown]
  - Wheezing [Unknown]
  - Fall [Unknown]
  - Arthralgia [Unknown]
  - Oral candidiasis [Unknown]
  - Oropharyngeal pain [Unknown]
  - Diarrhoea [Unknown]
  - Fatigue [Unknown]
  - Faeces discoloured [Recovered/Resolved]
  - Abdominal discomfort [Unknown]
  - Drug interaction [Unknown]
  - Gait disturbance [Unknown]
  - Urine abnormality [Unknown]
  - Dysphonia [Unknown]
  - Myalgia [Unknown]
  - Nausea [Unknown]
  - Chromaturia [Unknown]
  - Cough [Unknown]
  - Contusion [Unknown]
  - Dysuria [Unknown]
  - Pruritus [Unknown]
  - Pyrexia [Unknown]

NARRATIVE: CASE EVENT DATE: 2016
